FAERS Safety Report 19452833 (Version 1)
Quarter: 2021Q2

REPORT INFORMATION
  Report Type: Spontaneous
  Country: US (occurrence: US)
  Receive Date: 20210623
  Receipt Date: 20210623
  Transmission Date: 20210717
  Serious: No
  Sender: FDA-Public Use
  Company Number: US-GLAXOSMITHKLINE-USCH2021039835

PATIENT
  Age: 88 Year
  Sex: Male

DRUGS (2)
  1. VOLTAREN ARTHRITIS PAIN [Suspect]
     Active Substance: DICLOFENAC SODIUM
     Indication: ARTHRITIS
     Dosage: UNK
     Dates: start: 20210512, end: 20210620
  2. GAS?X MAXIMUM STRENGTH SOFTGELS [Suspect]
     Active Substance: DIMETHICONE
     Indication: FLATULENCE
     Dosage: UNK
     Dates: start: 20210616, end: 20210618

REACTIONS (2)
  - Drug ineffective [Recovered/Resolved]
  - Abdominal discomfort [Recovered/Resolved]
